FAERS Safety Report 17731737 (Version 7)
Quarter: 2020Q4

REPORT INFORMATION
  Report Type: Other
  Country: DE (occurrence: DE)
  Receive Date: 20200501
  Receipt Date: 20201215
  Transmission Date: 20210113
  Serious: Yes (Life-Threatening, Other)
  Sender: FDA-Public Use
  Company Number: DE-INCYTE CORPORATION-2020IN003885

PATIENT

DRUGS (23)
  1. ELIQUIS [Suspect]
     Active Substance: APIXABAN
     Dosage: UNK (2MG; 2.5MG)
     Route: 048
     Dates: end: 20200608
  2. BELOC ZOK MITE [Concomitant]
     Active Substance: METOPROLOL SUCCINATE
     Indication: HYPERTENSION
     Dosage: 47.5 MG
     Route: 065
     Dates: start: 20200107
  3. TORASEMIDE [Concomitant]
     Active Substance: TORSEMIDE
     Indication: HYPERTENSION
     Dosage: 10 MG
     Route: 065
     Dates: start: 201611
  4. TERABLOCK [Concomitant]
     Indication: BENIGN PROSTATIC HYPERPLASIA
     Dosage: 2 MG
     Route: 065
     Dates: start: 20170216, end: 20200106
  5. POMALIDOMIDE [Suspect]
     Active Substance: POMALIDOMIDE
     Indication: MYELOFIBROSIS
     Dosage: 0.5 MG, QD
     Route: 048
     Dates: start: 20191127
  6. ELIQUIS [Suspect]
     Active Substance: APIXABAN
     Dosage: 5 MG
     Route: 065
     Dates: end: 20201002
  7. POMALIDOMIDE [Suspect]
     Active Substance: POMALIDOMIDE
     Dosage: 0.5 MG, QD
     Route: 048
     Dates: start: 20191224, end: 20200107
  8. POMALIDOMIDE [Suspect]
     Active Substance: POMALIDOMIDE
     Dosage: 2 MG, QD
     Route: 048
     Dates: start: 20200512, end: 20200623
  9. POMALIDOMIDE [Suspect]
     Active Substance: POMALIDOMIDE
     Dosage: 0.5 MG, QD
     Route: 048
     Dates: start: 20191127
  10. RAMILICH [Concomitant]
     Active Substance: RAMIPRIL
     Indication: HYPERTENSION
     Dosage: 2.5 MG
     Route: 065
     Dates: start: 20170721
  11. ELIQUIS [Suspect]
     Active Substance: APIXABAN
     Indication: THROMBOSIS PROPHYLAXIS
     Dosage: 10 MG, QD
     Route: 065
     Dates: start: 20181113, end: 20200106
  12. POMALIDOMIDE [Suspect]
     Active Substance: POMALIDOMIDE
     Dosage: 0.5 MG, QD
     Route: 048
     Dates: start: 20191127, end: 20191223
  13. POMALIDOMIDE [Suspect]
     Active Substance: POMALIDOMIDE
     Dosage: UNK
     Route: 048
     Dates: start: 20200114, end: 20200120
  14. POMALIDOMIDE [Suspect]
     Active Substance: POMALIDOMIDE
     Dosage: UNK MG
     Route: 048
     Dates: start: 20200709
  15. JAKAVI [Suspect]
     Active Substance: RUXOLITINIB
     Dosage: 30 MG, QD
     Route: 048
     Dates: start: 20191224, end: 20200107
  16. JAKAVI [Suspect]
     Active Substance: RUXOLITINIB
     Dosage: 2 UNITS NOT SPECIFIED 1 DAY
     Route: 048
     Dates: start: 20200114, end: 20200120
  17. JAKAVI [Suspect]
     Active Substance: RUXOLITINIB
     Dosage: 50 MG, QD
     Route: 048
     Dates: start: 20200313, end: 20200623
  18. JAKAVI [Suspect]
     Active Substance: RUXOLITINIB
     Dosage: UNK
     Route: 048
     Dates: start: 20200709
  19. TAMSULOSIN [Concomitant]
     Active Substance: TAMSULOSIN
     Indication: PRODUCT USED FOR UNKNOWN INDICATION
     Dosage: UNK
     Route: 065
     Dates: start: 2020
  20. TOTAM [CEFOTAXIME] [Concomitant]
     Indication: PRODUCT USED FOR UNKNOWN INDICATION
     Dosage: UNK
     Route: 065
  21. JAKAVI [Suspect]
     Active Substance: RUXOLITINIB
     Indication: MYELOFIBROSIS
     Dosage: 40 MG, QD (20 MILLIGRAM, BID)
     Route: 048
     Dates: start: 20191127, end: 20191223
  22. JAKAVI [Suspect]
     Active Substance: RUXOLITINIB
     Dosage: 20 MG, QD (10 MILLIGRAM, BID)
     Route: 048
     Dates: start: 20191127, end: 20200929
  23. ELIQUIS [Suspect]
     Active Substance: APIXABAN
     Indication: HYPERTENSION
     Dosage: 5 MG, QD
     Route: 048
     Dates: start: 20200215

REACTIONS (9)
  - Haematoma [Unknown]
  - Atrial fibrillation [Unknown]
  - Intentional product use issue [Unknown]
  - Hypokalaemia [Unknown]
  - Syncope [Recovered/Resolved]
  - Infection [Recovered/Resolved]
  - Pneumonia [Unknown]
  - Epistaxis [Unknown]
  - Gastrointestinal haemorrhage [Recovered/Resolved]

NARRATIVE: CASE EVENT DATE: 20200107
